FAERS Safety Report 10044868 (Version 2)
Quarter: 2014Q1

REPORT INFORMATION
  Report Type: Spontaneous
  Country: US (occurrence: US)
  Receive Date: 20140328
  Receipt Date: 20140328
  Transmission Date: 20141002
  Serious: Yes (Hospitalization)
  Sender: FDA-Public Use
  Company Number: US-GLAXOSMITHKLINE-A0806878A

PATIENT
  Age: 60 Year
  Sex: Female

DRUGS (14)
  1. AVANDIA [Suspect]
     Indication: DIABETES MELLITUS
     Dosage: 8MG PER DAY
     Route: 048
     Dates: start: 2006, end: 2007
  2. ASPIRIN [Concomitant]
  3. CLONIDINE [Concomitant]
  4. FUROSEMIDE [Concomitant]
  5. HECTOROL [Concomitant]
  6. ISOSORBIDE [Concomitant]
  7. LISINOPRIL [Concomitant]
  8. PLAVIX [Concomitant]
  9. PRAVACHOL [Concomitant]
  10. PROCRIT [Concomitant]
  11. TOPROL XL [Concomitant]
  12. TYLENOL [Concomitant]
  13. VENOFER [Concomitant]
  14. HUMULIN N INSULIN [Concomitant]

REACTIONS (2)
  - Myocardial infarction [Not Recovered/Not Resolved]
  - Cardiac failure congestive [Unknown]
